FAERS Safety Report 8926187 (Version 3)
Quarter: 2014Q1

REPORT INFORMATION
  Report Type: Spontaneous
  Country: US (occurrence: US)
  Receive Date: 20121126
  Receipt Date: 20140109
  Transmission Date: 20141002
  Serious: Yes (Hospitalization)
  Sender: FDA-Public Use
  Company Number: US-BAYER-2012-121418

PATIENT
  Age: 36 Year
  Sex: Female

DRUGS (6)
  1. YAZ [Suspect]
     Indication: CONTRACEPTION
     Dosage: UNK
     Dates: start: 20080820, end: 200912
  2. HYDROCODONE W/APAP [Concomitant]
     Dosage: 5/500MG
     Route: 048
     Dates: start: 20090907, end: 20091224
  3. CIPROFLOXACIN HYDROCHLORIDE [Concomitant]
     Dosage: 250 MG, UNK
     Route: 048
     Dates: start: 20091130
  4. ONDANSETRON [Concomitant]
     Dosage: 4 MG, UNK
     Route: 048
     Dates: start: 20091130
  5. BUPROPION HYDROCHLORIDE [Concomitant]
     Dosage: 150 MG, UNK
     Route: 048
     Dates: start: 20091201
  6. APRI [Concomitant]
     Dosage: UNK
     Dates: start: 20091207, end: 2010

REACTIONS (5)
  - Cholelithiasis [None]
  - Injury [None]
  - Pain [None]
  - Abdominal pain [None]
  - Abdominal pain upper [None]
